FAERS Safety Report 5852937-4 (Version None)
Quarter: 2008Q3

REPORT INFORMATION
  Report Type: 
  Country: None (occurrence: None)
  Receive Date: 20080814
  Receipt Date: 20080701
  Transmission Date: 20090109
  Serious: No
  Sender: FDA-Public Use
  Company Number: WAES 0807USA00425

PATIENT
  Age: 44 Year

DRUGS (1)
  1. ISENTRESS [Suspect]
     Dosage: PO
     Route: 048
     Dates: start: 20080501

REACTIONS (3)
  - FATIGUE [None]
  - INSOMNIA [None]
  - VASODILATATION [None]
